FAERS Safety Report 8424311-8 (Version None)
Quarter: 2012Q2

REPORT INFORMATION
  Report Type: 
  Country: None (occurrence: None)
  Receive Date: 20120608
  Receipt Date: 20111202
  Transmission Date: 20120825
  Serious: No
  Sender: FDA-Public Use
  Company Number: US-ASTRAZENECA-2011SE73613

PATIENT
  Sex: Female

DRUGS (7)
  1. ENABLEX [Concomitant]
  2. PULMICORT [Suspect]
     Route: 055
  3. ACIPHEX [Concomitant]
  4. NASONEX [Concomitant]
  5. CRESTOR [Concomitant]
  6. REGLAN [Concomitant]
  7. PROVENTIL-HFA [Concomitant]

REACTIONS (1)
  - MALAISE [None]
